FAERS Safety Report 5711474-8 (Version None)
Quarter: 2008Q2

REPORT INFORMATION
  Report Type: 
  Country: None (occurrence: None)
  Receive Date: 20080418
  Receipt Date: 20080418
  Transmission Date: 20081010
  Serious: Yes (Life-Threatening, Hospitalization)
  Sender: FDA-Public Use
  Company Number: None

PATIENT
  Age: 16 Year
  Sex: Female
  Weight: 47 kg

DRUGS (4)
  1. TOPAMAX [Suspect]
     Indication: MIGRAINE PROPHYLAXIS
     Dosage: 25 MG TWICE A DAY ORAL
     Route: 048
     Dates: start: 20080318, end: 20080331
  2. AMITRIPTYLINE HCL [Concomitant]
  3. MAXALT [Concomitant]
  4. LOESTRIN 1.5/30 [Concomitant]

REACTIONS (3)
  - INTENTIONAL OVERDOSE [None]
  - SELF-INJURIOUS IDEATION [None]
  - SUICIDAL IDEATION [None]
